FAERS Safety Report 6936336-X (Version None)
Quarter: 2010Q3

REPORT INFORMATION
  Report Type: 
  Country: None (occurrence: None)
  Receive Date: 20100817
  Receipt Date: 20100604
  Transmission Date: 20110219
  Serious: No
  Sender: FDA-Public Use
  Company Number: WAES 1006USA00933

PATIENT
  Age: 47 Year
  Sex: Female

DRUGS (2)
  1. ISENTRESS [Suspect]
     Indication: HIV INFECTION
     Dosage: 400 MG/DAILY/PO
     Route: 048
     Dates: start: 20091201
  2. ALPHAL-PROTEINASE INHIBITOR [Concomitant]

REACTIONS (2)
  - MUSCLE MASS [None]
  - PAIN [None]
